FAERS Safety Report 12674142 (Version 1)
Quarter: 2016Q3

REPORT INFORMATION
  Report Type: Report from Study
  Country: BR (occurrence: BR)
  Receive Date: 20160822
  Receipt Date: 20160822
  Transmission Date: 20161109
  Serious: Yes (Other)
  Sender: FDA-Public Use
  Company Number: PHHY2013BR075503

PATIENT
  Sex: Male
  Weight: 93 kg

DRUGS (6)
  1. PURAN [Concomitant]
     Active Substance: LEVOTHYROXINE SODIUM
     Indication: PROPHYLAXIS
     Dosage: 1 DF, DAILY
     Route: 048
  2. DURATESTON [Concomitant]
     Active Substance: TESTOSTERONE
     Indication: HORMONE REPLACEMENT THERAPY
     Dosage: 1 DF, QMO
  3. SANDOSTATIN LAR DEPOT [Suspect]
     Active Substance: OCTREOTIDE ACETATE
     Indication: ACROMEGALY
     Dosage: 20 MG, QMO
     Route: 030
     Dates: start: 2010
  4. SANDOSTATIN LAR DEPOT [Suspect]
     Active Substance: OCTREOTIDE ACETATE
     Dosage: 30 MG, QMO
     Route: 030
  5. METFORMIN [Concomitant]
     Active Substance: METFORMIN HYDROCHLORIDE
     Indication: GASTROINTESTINAL DISORDER
     Dosage: 2 DF, DAILY
     Route: 048
  6. DOSTINEX [Concomitant]
     Active Substance: CABERGOLINE
     Indication: ACROMEGALY
     Dosage: 5 DF, WEEKLY
     Route: 048

REACTIONS (9)
  - Blindness unilateral [Unknown]
  - Eye pain [Recovered/Resolved]
  - Abdominal distension [Recovered/Resolved]
  - Glaucoma [Recovering/Resolving]
  - Headache [Recovered/Resolved]
  - Constipation [Recovered/Resolved]
  - Visual acuity reduced [Unknown]
  - Weight increased [Recovered/Resolved]
  - Drug ineffective [Recovered/Resolved]
